FAERS Safety Report 5556861-6 (Version None)
Quarter: 2007Q4

REPORT INFORMATION
  Report Type: 
  Country: None (occurrence: None)
  Receive Date: 20071212
  Receipt Date: 20071212
  Transmission Date: 20080405
  Serious: Yes (Life-Threatening, Hospitalization)
  Sender: FDA-Public Use
  Company Number: None

PATIENT
  Sex: Male
  Weight: 36.2878 kg

DRUGS (3)
  1. CHILDREN'S MOTRIN [Suspect]
     Indication: PAIN
     Dosage: 2 JR MOTRIN TABLETS AS DIRECTED ORAL
     Route: 048
     Dates: start: 20071105
  2. CHILDREN'S MOTRIN [Suspect]
     Indication: PYREXIA
     Dosage: 2 JR MOTRIN TABLETS AS DIRECTED ORAL
     Route: 048
     Dates: start: 20071105
  3. TRIAMINIC 8HR COUGH SUPPRESANT [Suspect]
     Indication: COUGH
     Dosage: 2 TEASPOONS 2 DOSES ORAL
     Route: 048
     Dates: start: 20071105

REACTIONS (1)
  - STEVENS-JOHNSON SYNDROME [None]
